FAERS Safety Report 5364665-2 (Version None)
Quarter: 2007Q2

REPORT INFORMATION
  Report Type: 
  Country: None (occurrence: None)
  Receive Date: 20070621
  Receipt Date: 20070612
  Transmission Date: 20071010
  Serious: Yes (Other)
  Sender: FDA-Public Use
  Company Number: PHBS2007BE09975

PATIENT
  Age: 41 Year
  Sex: Female

DRUGS (5)
  1. GLEEVEC [Suspect]
     Indication: ACUTE LYMPHOCYTIC LEUKAEMIA
     Dosage: 400 MG/D
     Route: 048
     Dates: start: 20070501
  2. GLEEVEC [Suspect]
     Dosage: 600 MG/D
     Route: 048
  3. GLEEVEC [Suspect]
     Dosage: 400 MG/D
     Route: 048
  4. CHEMOTHERAPEUTICS,OTHER [Concomitant]
     Route: 065
  5. LITICAN [Concomitant]
     Route: 065

REACTIONS (3)
  - BLOOD PROLACTIN INCREASED [None]
  - BREAST PAIN [None]
  - GALACTORRHOEA [None]
